FAERS Safety Report 19552106 (Version 1)
Quarter: 2021Q3

REPORT INFORMATION
  Report Type: Spontaneous
  Country: FR (occurrence: FR)
  Receive Date: 20210715
  Receipt Date: 20210715
  Transmission Date: 20211014
  Serious: Yes (Hospitalization)
  Sender: FDA-Public Use
  Company Number: FR-SUN PHARMACEUTICAL INDUSTRIES LTD-2021RR-304406

PATIENT
  Age: 73 Year
  Sex: Female
  Weight: 48 kg

DRUGS (2)
  1. OXALIPLATIN. [Suspect]
     Active Substance: OXALIPLATIN
     Indication: PANCREATIC CARCINOMA
     Dosage: 122.5 MILLIGRAM, IN TOTAL
     Route: 041
     Dates: start: 20210517
  2. IRINOTECAN [Suspect]
     Active Substance: IRINOTECAN
     Indication: PANCREATIC CARCINOMA
     Dosage: 260 MILLIGRAM, IN TOTAL
     Route: 041
     Dates: start: 20210517

REACTIONS (3)
  - Trismus [Recovered/Resolved]
  - Muscle tightness [Recovered/Resolved]
  - Dysarthria [Recovered/Resolved]

NARRATIVE: CASE EVENT DATE: 20210517
